FAERS Safety Report 10388228 (Version 1)
Quarter: 2014Q3

REPORT INFORMATION
  Report Type: Spontaneous
  Country: CA (occurrence: CA)
  Receive Date: 20140815
  Receipt Date: 20140815
  Transmission Date: 20150326
  Serious: Yes (Hospitalization)
  Sender: FDA-Public Use
  Company Number: CA-GLAXOSMITHKLINE-B1023874A

PATIENT
  Age: 6 Month
  Sex: Female
  Weight: 6.5 kg

DRUGS (2)
  1. BUPROPION [Suspect]
     Active Substance: BUPROPION
     Indication: PRODUCT USED FOR UNKNOWN INDICATION
     Dosage: 150MG PER DAY
     Route: 065
  2. ESCITALOPRAM [Suspect]
     Active Substance: ESCITALOPRAM OXALATE
     Indication: PRODUCT USED FOR UNKNOWN INDICATION
     Dosage: 10MG PER DAY
     Route: 065

REACTIONS (8)
  - Sleep disorder [Unknown]
  - Tonic convulsion [Recovered/Resolved]
  - Unresponsive to stimuli [Unknown]
  - Exposure during breast feeding [Unknown]
  - Vomiting [Unknown]
  - Somnolence [Unknown]
  - Staring [Unknown]
  - Cyanosis [Unknown]
